FAERS Safety Report 8017987-0 (Version None)
Quarter: 2012Q1

REPORT INFORMATION
  Report Type: 
  Country: None (occurrence: None)
  Receive Date: 20120103
  Receipt Date: 20111227
  Transmission Date: 20120608
  Serious: No
  Sender: FDA-Public Use
  Company Number: US-B.I. PHARMACEUTICALS,INC./RIDGEFIELD-2011-BP-28881BP

PATIENT
  Age: 14 Year
  Sex: Female

DRUGS (4)
  1. ZYRTEC [Concomitant]
  2. ZANTAC 150 [Suspect]
     Indication: DYSPEPSIA
     Dosage: 300 MG
     Route: 048
     Dates: start: 20111227
  3. ZOFRAN [Concomitant]
  4. ZANTAC 150 [Suspect]
     Dosage: 300 MG
     Route: 048
     Dates: start: 20110701

REACTIONS (1)
  - ACCIDENTAL OVERDOSE [None]
